FAERS Safety Report 21935345 (Version 2)
Quarter: 2023Q1

REPORT INFORMATION
  Report Type: Spontaneous
  Country: US (occurrence: US)
  Receive Date: 20230201
  Receipt Date: 20230320
  Transmission Date: 20230418
  Serious: No
  Sender: FDA-Public Use
  Company Number: US-PFIZER INC-202300039384

PATIENT
  Age: 67 Year
  Sex: Female
  Weight: 75.75 kg

DRUGS (1)
  1. ESTRING [Suspect]
     Active Substance: ESTRADIOL
     Indication: Menopausal symptoms
     Dosage: ONE RING EVERY 90 DAYS, INSERTED VAGINALLY
     Route: 067

REACTIONS (2)
  - Body height decreased [Unknown]
  - Device use issue [Unknown]
